FAERS Safety Report 6529505-4 (Version None)
Quarter: 2010Q1

REPORT INFORMATION
  Report Type: 
  Country: None (occurrence: None)
  Receive Date: 20100104
  Receipt Date: 20091217
  Transmission Date: 20100710
  Serious: Yes (Hospitalization, Congenital Anomaly)
  Sender: FDA-Public Use
  Company Number: JPI-P-009092

PATIENT
  Sex: Female

DRUGS (4)
  1. LUVOX [Suspect]
     Indication: PANIC DISORDER
     Dosage: (25 MG,1 D),ORAL ; (75 MG,1 D),ORAL ; (50 MG,1 D),ORAL
     Route: 048
     Dates: start: 20080114, end: 20090113
  2. LUVOX [Suspect]
     Indication: PANIC DISORDER
     Dosage: (25 MG,1 D),ORAL ; (75 MG,1 D),ORAL ; (50 MG,1 D),ORAL
     Route: 048
     Dates: start: 20090114, end: 20090301
  3. LUVOX [Suspect]
     Indication: PANIC DISORDER
     Dosage: (25 MG,1 D),ORAL ; (75 MG,1 D),ORAL ; (50 MG,1 D),ORAL
     Route: 048
     Dates: start: 20090302, end: 20090626
  4. CLONAZEPAM [Concomitant]

REACTIONS (3)
  - DRUG EXPOSURE DURING PREGNANCY [None]
  - HYPEREMESIS GRAVIDARUM [None]
  - PREGNANCY [None]
